FAERS Safety Report 7153740-8 (Version None)
Quarter: 2010Q4

REPORT INFORMATION
  Report Type: 
  Country: None (occurrence: None)
  Receive Date: 20101213
  Receipt Date: 20101207
  Transmission Date: 20110411
  Serious: Yes (Death)
  Sender: FDA-Public Use
  Company Number: JP-GENENTECH-307241

PATIENT
  Sex: Female

DRUGS (9)
  1. RITUXAN [Suspect]
     Indication: MANTLE CELL LYMPHOMA
     Dosage: 540 MG, UNKNOWN
     Route: 042
     Dates: start: 20080130, end: 20090901
  2. RITUXAN [Suspect]
     Dosage: 540 MG, Q3M
     Route: 042
     Dates: start: 20090204, end: 20090916
  3. CYCLOPHOSPHAMIDE [Concomitant]
     Indication: MANTLE CELL LYMPHOMA
     Dosage: UNK UNK, UNKNOWN
     Route: 065
  4. DOXORUBICIN HCL [Concomitant]
     Indication: MANTLE CELL LYMPHOMA
     Dosage: UNK UNK, UNKNOWN
     Route: 065
  5. VINCRISTINE SULFATE [Concomitant]
     Indication: MANTLE CELL LYMPHOMA
     Dosage: UNK UNK, UNKNOWN
     Route: 065
  6. PREDNISOLONE [Concomitant]
     Indication: MANTLE CELL LYMPHOMA
     Dosage: UNK UNK, UNKNOWN
     Route: 065
  7. FLUDARABINE PHOSPHATE [Concomitant]
     Indication: MANTLE CELL LYMPHOMA
     Dosage: 60 MG, UNKNOWN
     Route: 048
     Dates: start: 20080130, end: 20080831
  8. FLUDARABINE PHOSPHATE [Concomitant]
     Dosage: UNK UNK, UNKNOWN
     Route: 048
  9. DECADRON [Concomitant]
     Indication: MANTLE CELL LYMPHOMA
     Dosage: 40 MG, UNK
     Route: 048
     Dates: start: 20080130, end: 20080831

REACTIONS (1)
  - PROGRESSIVE MULTIFOCAL LEUKOENCEPHALOPATHY [None]
